FAERS Safety Report 9266591 (Version 3)
Quarter: 2013Q2

REPORT INFORMATION
  Report Type: Report from Study
  Country: CA (occurrence: CA)
  Receive Date: 20130502
  Receipt Date: 20130624
  Transmission Date: 20140414
  Serious: Yes (Death, Other)
  Sender: FDA-Public Use
  Company Number: PHHY2013CA042935

PATIENT
  Age: 74 Year
  Sex: Male

DRUGS (3)
  1. CLOZARIL [Suspect]
     Dosage: 200 MG, BID
     Route: 048
     Dates: start: 1995
  2. CLOZARIL [Suspect]
     Dosage: UNK
     Dates: start: 19961217
  3. PAXIL [Concomitant]
     Dosage: UNK

REACTIONS (3)
  - Influenza [Fatal]
  - Respiratory disorder [Fatal]
  - Gastrointestinal disorder [Unknown]
